FAERS Safety Report 7260606-1 (Version None)
Quarter: 2011Q1

REPORT INFORMATION
  Report Type: 
  Country: None (occurrence: None)
  Receive Date: 20110130
  Receipt Date: 20101216
  Transmission Date: 20110831
  Serious: No
  Sender: FDA-Public Use
  Company Number: US-ABBOTT-10P-163-0684639-00

PATIENT
  Sex: Female
  Weight: 61.29 kg

DRUGS (7)
  1. DICLOFENAC [Concomitant]
     Indication: INFLAMMATION
  2. DICLOFENAC [Concomitant]
     Indication: RHEUMATOID ARTHRITIS
  3. ALBUTEROL [Concomitant]
     Indication: ASTHMA EXERCISE INDUCED
  4. HUMIRA [Suspect]
     Indication: RHEUMATOID ARTHRITIS
     Dates: start: 20101002, end: 20101201
  5. BENAZEPRIL HYDROCHLORIDE [Concomitant]
     Indication: HYPERTENSION
  6. HYDROXYCHLOROQUINE [Concomitant]
     Indication: RHEUMATOID ARTHRITIS
  7. LEFLUNOMIDE [Concomitant]
     Indication: RHEUMATOID ARTHRITIS

REACTIONS (7)
  - NODULE [None]
  - INJECTION SITE HAEMATOMA [None]
  - RASH ERYTHEMATOUS [None]
  - INJECTION SITE HAEMORRHAGE [None]
  - CONTUSION [None]
  - INJECTION SITE PAIN [None]
  - RASH PUSTULAR [None]
